FAERS Safety Report 9534301 (Version 1)
Quarter: 2013Q3

REPORT INFORMATION
  Report Type: Spontaneous
  Country: ZA (occurrence: ZA)
  Receive Date: 20130918
  Receipt Date: 20130918
  Transmission Date: 20140515
  Serious: Yes (Other)
  Sender: FDA-Public Use
  Company Number: ZA-GLAXOSMITHKLINE-B0922938A

PATIENT
  Age: 13 Year
  Sex: Female

DRUGS (2)
  1. LAMICTIN [Suspect]
     Indication: EPILEPSY
     Route: 065
  2. LAMICTIN [Suspect]
     Indication: EPILEPSY
     Route: 065
     Dates: start: 201301, end: 201301

REACTIONS (8)
  - Convulsion [Unknown]
  - Pruritus [Unknown]
  - Psychomotor hyperactivity [Unknown]
  - Decreased appetite [Unknown]
  - Headache [Unknown]
  - Rash [Unknown]
  - Abdominal pain upper [Unknown]
  - Petit mal epilepsy [Unknown]
